FAERS Safety Report 5815469-5 (Version None)
Quarter: 2008Q3

REPORT INFORMATION
  Report Type: 
  Country: None (occurrence: None)
  Receive Date: 20080718
  Receipt Date: 20080708
  Transmission Date: 20090109
  Serious: Yes (Hospitalization)
  Sender: FDA-Public Use
  Company Number: FR-PFIZER INC-2008057259

PATIENT
  Age: 60 Year
  Sex: Female

DRUGS (8)
  1. DOXORUBICIN HYDROCHLORIDE [Suspect]
     Dosage: DAILY DOSE:37MG
     Route: 042
     Dates: start: 20070427, end: 20070816
  2. BLEOMYCIN SULFATE [Suspect]
     Indication: NON-HODGKIN'S LYMPHOMA
     Dosage: DAILY DOSE:15MG
     Route: 042
     Dates: start: 20070427, end: 20070802
  3. DETICENE [Suspect]
     Dosage: DAILY DOSE:560MG
     Route: 042
     Dates: start: 20070427, end: 20070816
  4. VELBE [Suspect]
     Dosage: DAILY DOSE:8.9MG
     Route: 042
     Dates: start: 20070427, end: 20070816
  5. PLAVIX [Concomitant]
     Route: 048
  6. SOTALOL HCL [Concomitant]
     Route: 048
  7. XANAX [Concomitant]
     Route: 048
  8. AMITRIPTYLINE HYDROCHLORIDE [Concomitant]
     Route: 048

REACTIONS (1)
  - PULMONARY FIBROSIS [None]
